FAERS Safety Report 8817714 (Version 1)
Quarter: 2012Q4

REPORT INFORMATION
  Report Type: 
  Country: US (occurrence: US)
  Receive Date: 20121001
  Receipt Date: 20121001
  Transmission Date: 20130627
  Serious: Yes (Other)
  Sender: FDA-Public Use
  Company Number: US-PFIZER INC-2012241918

PATIENT
  Age: 44 Year
  Sex: Female
  Weight: 51.2 kg

DRUGS (7)
  1. EFFEXOR [Suspect]
     Indication: DEPRESSION
     Dosage: UNK
  2. KLONOPIN [Concomitant]
     Indication: FATIGUE
     Dosage: half a tablet of 2mg,daily
  3. KLONOPIN [Concomitant]
     Indication: SLEEP DISORDER
  4. RITALIN [Concomitant]
     Indication: FATIGUE
     Dosage: 20mg in morning and 10mg at noon
  5. RITALIN [Concomitant]
     Indication: SLEEP DISORDER
  6. OXYIR [Concomitant]
     Indication: ARTHRALGIA
     Dosage: 5 mg, as needed
  7. OXYIR [Concomitant]
     Indication: DYSKINESIA

REACTIONS (2)
  - Lyme disease [Not Recovered/Not Resolved]
  - VIIth nerve paralysis [Unknown]
